FAERS Safety Report 8893756 (Version 1)
Quarter: 2012Q4

REPORT INFORMATION
  Report Type: 
  Country: US (occurrence: US)
  Receive Date: 20121107
  Receipt Date: 20121107
  Transmission Date: 20130627
  Serious: No
  Sender: FDA-Public Use
  Company Number: US-AMGEN-USASP2011060404

PATIENT
  Age: 58 Year
  Sex: Female

DRUGS (4)
  1. ENBREL [Suspect]
     Indication: RHEUMATOID ARTHRITIS
     Dosage: 50 mg, qwk
     Dates: start: 20110515, end: 201108
  2. METHOTREXATE [Concomitant]
     Dosage: 9 mg, qwk
     Dates: start: 201108
  3. CIPROFLOXACIN [Concomitant]
  4. DIFLUCAN [Concomitant]

REACTIONS (6)
  - Cyst [Recovered/Resolved]
  - Arthralgia [Not Recovered/Not Resolved]
  - Oral mucosal blistering [Recovered/Resolved]
  - Productive cough [Not Recovered/Not Resolved]
  - Ear infection fungal [Recovered/Resolved]
  - Drug ineffective [Not Recovered/Not Resolved]
